FAERS Safety Report 4800363-9 (Version None)
Quarter: 2005Q4

REPORT INFORMATION
  Report Type: 
  Country: None (occurrence: None)
  Receive Date: 20051012
  Receipt Date: 20050928
  Transmission Date: 20060501
  Serious: Yes (Other)
  Sender: FDA-Public Use
  Company Number: 2005-BP-17374RO

PATIENT
  Age: 53 Year
  Sex: Female

DRUGS (8)
  1. CYCLOPHOSPHAMIDE [Suspect]
     Indication: OPTIC NEUROPATHY
     Dosage: SEE TEXT
     Dates: start: 20010201, end: 20021001
  2. INFLIXIMAB (INFLIXIMAB) [Suspect]
     Indication: RHEUMATOID ARTHRITIS
     Dosage: 200 MG ON WEEK 0, 2, 6 AND EVERY 8 WEEKS THEREAFTER IV
     Route: 042
     Dates: start: 20020601, end: 20030801
  3. IBUPROFEN [Suspect]
     Indication: RHEUMATOID ARTHRITIS
     Dates: start: 20000101
  4. NAPROXEN [Suspect]
     Indication: RHEUMATOID ARTHRITIS
     Dates: start: 20000101
  5. ROFECOXIB [Suspect]
     Indication: RHEUMATOID ARTHRITIS
     Dates: start: 20000101
  6. GABAPENTIN [Suspect]
     Indication: RHEUMATOID ARTHRITIS
     Dates: start: 20011201
  7. CELECOXIB (CELECOXIB) [Suspect]
     Indication: RHEUMATOID ARTHRITIS
     Dates: start: 20011201
  8. PREDNISONE [Concomitant]

REACTIONS (6)
  - DRUG INEFFECTIVE [None]
  - LEUKOPENIA [None]
  - LYMPHOPENIA [None]
  - METAMYELOCYTE COUNT INCREASED [None]
  - MOLLUSCUM CONTAGIOSUM [None]
  - SYNOVITIS [None]
